FAERS Safety Report 23863194 (Version 1)
Quarter: 2024Q2

REPORT INFORMATION
  Report Type: Spontaneous
  Country: DE (occurrence: DE)
  Receive Date: 20240516
  Receipt Date: 20240516
  Transmission Date: 20240716
  Serious: Yes (Other)
  Sender: FDA-Public Use
  Company Number: None

PATIENT
  Age: 23 Year
  Sex: Male
  Weight: 68 kg

DRUGS (4)
  1. ESCITALOPRAM [Suspect]
     Active Substance: ESCITALOPRAM OXALATE
     Indication: Irritable bowel syndrome
     Dosage: 10 MILLIGRAM
     Route: 048
     Dates: start: 20230410, end: 20230418
  2. ESCITALOPRAM [Suspect]
     Active Substance: ESCITALOPRAM OXALATE
     Dosage: 5 MILLIGRAM
     Route: 048
     Dates: start: 20240327, end: 20240402
  3. ESCITALOPRAM [Suspect]
     Active Substance: ESCITALOPRAM OXALATE
     Dosage: 5MG - 6 DAYS 5MG AND ON THE LAST (7 DAY) 10MG. OVERALL, THE INTAKE WAS FOR ONE WEEK.
     Route: 048
     Dates: start: 202403, end: 202403
  4. ESCITALOPRAM [Suspect]
     Active Substance: ESCITALOPRAM OXALATE
     Dosage: 10 MG - 6 DAYS 5MG AND ON THE LAST (7 DAY) 10MG. IN TOTAL, IT WAS TAKEN FOR ONE WEEK
     Route: 048
     Dates: start: 202404, end: 202404

REACTIONS (8)
  - Erectile dysfunction [Not Recovered/Not Resolved]
  - Cognitive disorder [Not Recovered/Not Resolved]
  - Sexual dysfunction [Not Recovered/Not Resolved]
  - Emotional disorder [Not Recovered/Not Resolved]
  - Insomnia [Not Recovered/Not Resolved]
  - Restlessness [Not Recovered/Not Resolved]
  - Headache [Not Recovered/Not Resolved]
  - Ejaculation disorder [Not Recovered/Not Resolved]

NARRATIVE: CASE EVENT DATE: 20230423
